FAERS Safety Report 16251575 (Version 1)
Quarter: 2019Q2

REPORT INFORMATION
  Report Type: Spontaneous
  Country: US (occurrence: US)
  Receive Date: 20190429
  Receipt Date: 20190429
  Transmission Date: 20190711
  Serious: No
  Sender: FDA-Public Use
  Company Number: US-ELI_LILLY_AND_COMPANY-US201904004279

PATIENT
  Sex: Male

DRUGS (1)
  1. GALCANEZUMAB 120MG [Suspect]
     Active Substance: GALCANEZUMAB
     Indication: PRODUCT USED FOR UNKNOWN INDICATION
     Dosage: 120 MG, MONTHLY (1/M)
     Route: 058

REACTIONS (3)
  - Product dose omission [Unknown]
  - Injection site pain [Unknown]
  - Injection site mass [Unknown]
